FAERS Safety Report 5049189-4 (Version None)
Quarter: 2006Q3

REPORT INFORMATION
  Report Type: 
  Country: None (occurrence: None)
  Receive Date: 20060712
  Receipt Date: 20060515
  Transmission Date: 20061208
  Serious: No
  Sender: FDA-Public Use
  Company Number: US-GLAXOSMITHKLINE-A0605618A

PATIENT
  Age: 36 Year
  Sex: Female

DRUGS (1)
  1. IMITREX [Suspect]
     Indication: MIGRAINE
     Dosage: 100MG AS REQUIRED
     Dates: start: 20040101

REACTIONS (3)
  - HYPOAESTHESIA [None]
  - MIOSIS [None]
  - PARAESTHESIA [None]
